FAERS Safety Report 16325535 (Version 3)
Quarter: 2019Q2

REPORT INFORMATION
  Report Type: Spontaneous
  Country: BR (occurrence: BR)
  Receive Date: 20190517
  Receipt Date: 20190528
  Transmission Date: 20190711
  Serious: Yes (Life-Threatening, Disabling, Other)
  Sender: FDA-Public Use
  Company Number: IND-BR-009507513-1905BRA004652

PATIENT
  Age: 5 Month
  Sex: Male

DRUGS (1)
  1. ARCOXIA [Suspect]
     Active Substance: ETORICOXIB
     Dosage: 1 TABLET
     Route: 063
     Dates: start: 20190430, end: 201905

REACTIONS (7)
  - Irritability [Recovered/Resolved]
  - Exposure via breast milk [Unknown]
  - Dyspnoea [Recovered/Resolved]
  - Body temperature decreased [Recovered/Resolved]
  - Rash [Recovered/Resolved]
  - Vomiting [Recovered/Resolved]
  - Mucous stools [Recovered/Resolved]

NARRATIVE: CASE EVENT DATE: 2019
